FAERS Safety Report 6922766-9 (Version None)
Quarter: 2010Q3

REPORT INFORMATION
  Report Type: 
  Country: None (occurrence: None)
  Receive Date: 20100813
  Receipt Date: 20100806
  Transmission Date: 20110219
  Serious: No
  Sender: FDA-Public Use
  Company Number: DE-ASTRAZENECA-2010SE23924

PATIENT
  Sex: Female
  Weight: 62 kg

DRUGS (9)
  1. SEROQUEL XR [Suspect]
     Indication: TINNITUS
     Route: 048
     Dates: start: 20090724, end: 20091209
  2. SEROQUEL XR [Suspect]
     Indication: FEELING JITTERY
     Route: 048
     Dates: start: 20090724, end: 20091209
  3. SEROQUEL XR [Suspect]
     Indication: INSOMNIA
     Route: 048
     Dates: start: 20090724, end: 20091209
  4. SEROQUEL XR [Suspect]
     Route: 048
     Dates: start: 20091210, end: 20100101
  5. SEROQUEL XR [Suspect]
     Route: 048
     Dates: start: 20091210, end: 20100101
  6. SEROQUEL XR [Suspect]
     Route: 048
     Dates: start: 20091210, end: 20100101
  7. SEROQUEL XR [Suspect]
     Route: 048
     Dates: start: 20100101
  8. SEROQUEL XR [Suspect]
     Route: 048
     Dates: start: 20100101
  9. SEROQUEL XR [Suspect]
     Route: 048
     Dates: start: 20100101

REACTIONS (14)
  - ARTHRALGIA [None]
  - BURNOUT SYNDROME [None]
  - DECREASED ACTIVITY [None]
  - DISTRACTIBILITY [None]
  - DRY MOUTH [None]
  - MOOD ALTERED [None]
  - MUSCULOSKELETAL STIFFNESS [None]
  - MYALGIA [None]
  - NASAL CONGESTION [None]
  - OFF LABEL USE [None]
  - PANIC ATTACK [None]
  - THOUGHT BLOCKING [None]
  - WEIGHT INCREASED [None]
  - WHITE BLOOD CELL COUNT DECREASED [None]
